FAERS Safety Report 10713017 (Version 2)
Quarter: 2015Q1

REPORT INFORMATION
  Report Type: Spontaneous
  Country: BH (occurrence: BH)
  Receive Date: 20150115
  Receipt Date: 20150203
  Transmission Date: 20150721
  Serious: Yes (Death, Other)
  Sender: FDA-Public Use
  Company Number: BH-SA-2015SA003887

PATIENT
  Sex: Male

DRUGS (2)
  1. MYOZYME [Suspect]
     Active Substance: ALGLUCOSIDASE ALFA
     Indication: GLYCOGEN STORAGE DISEASE TYPE II
     Route: 042
     Dates: start: 201401
  2. LIDOCAINE. [Concomitant]
     Active Substance: LIDOCAINE
     Indication: ARRHYTHMIA

REACTIONS (3)
  - Sepsis [Fatal]
  - Childhood disintegrative disorder [Unknown]
  - Supraventricular tachycardia [Unknown]

NARRATIVE: CASE EVENT DATE: 201410
